FAERS Safety Report 23548277 (Version 1)
Quarter: 2024Q1

REPORT INFORMATION
  Report Type: Report from Study
  Country: DE (occurrence: DE)
  Receive Date: 20240221
  Receipt Date: 20240221
  Transmission Date: 20240410
  Serious: Yes (Other)
  Sender: FDA-Public Use
  Company Number: DE-PFIZER INC-202300418895

PATIENT

DRUGS (5)
  1. ETANERCEPT [Suspect]
     Active Substance: ETANERCEPT
     Indication: Product used for unknown indication
     Dosage: 50 MG, 1X/WEEK
     Route: 064
     Dates: start: 20230321, end: 20230921
  2. ENBREL [Suspect]
     Active Substance: ETANERCEPT
     Indication: Axial spondyloarthritis
     Dosage: 50 MG, 1X/WEEK
     Route: 064
     Dates: start: 20220915, end: 20230320
  3. MIRTAZAPINE [Concomitant]
     Active Substance: MIRTAZAPINE
     Indication: Product used for unknown indication
     Dosage: 15 MG
     Route: 064
  4. PENTASA [Concomitant]
     Active Substance: MESALAMINE
     Indication: Axial spondyloarthritis
     Route: 064
  5. Salofalk [Concomitant]
     Indication: Product used for unknown indication
     Route: 064

REACTIONS (2)
  - Premature baby [Recovered/Resolved]
  - Maternal exposure during pregnancy [Recovered/Resolved]

NARRATIVE: CASE EVENT DATE: 20230811
